FAERS Safety Report 23522131 (Version 3)
Quarter: 2024Q3

REPORT INFORMATION
  Report Type: Spontaneous
  Country: US (occurrence: US)
  Receive Date: 20240214
  Receipt Date: 20240816
  Transmission Date: 20241017
  Serious: Yes (Other)
  Sender: SANOFI AVENTIS
  Company Number: US-SA-SAC20231113000997

PATIENT
  Age: 63 Year
  Sex: Female
  Weight: 83 kg

DRUGS (1)
  1. DUPIXENT [Suspect]
     Active Substance: DUPILUMAB
     Indication: Dermatitis atopic
     Dosage: 300 MG, QOW
     Route: 058
     Dates: start: 202308

REACTIONS (8)
  - Chronic lymphocytic leukaemia [Unknown]
  - Injection site pruritus [Recovered/Resolved]
  - Injection site erythema [Recovered/Resolved]
  - Injection site swelling [Recovered/Resolved]
  - Pruritus [Not Recovered/Not Resolved]
  - Eczema [Not Recovered/Not Resolved]
  - Drug ineffective [Unknown]
  - Therapeutic product effect incomplete [Unknown]
